FAERS Safety Report 10086392 (Version 2)
Quarter: 2014Q2

REPORT INFORMATION
  Report Type: Spontaneous
  Country: US (occurrence: US)
  Receive Date: 20140418
  Receipt Date: 20140418
  Transmission Date: 20141212
  Serious: No
  Sender: FDA-Public Use
  Company Number: US-GE HEALTHCARE MEDICAL DIAGNOSTICS-VISP-PR-1402S-0086

PATIENT
  Age: 62 Year
  Sex: Female
  Weight: 41.77 kg

DRUGS (2)
  1. VISIPAQUE [Suspect]
     Indication: INVESTIGATION
     Route: 042
     Dates: start: 20140227, end: 20140227
  2. VISIPAQUE [Suspect]
     Indication: DIAGNOSTIC PROCEDURE

REACTIONS (1)
  - Back pain [Recovered/Resolved]
